FAERS Safety Report 24738825 (Version 1)
Quarter: 2024Q4

REPORT INFORMATION
  Report Type: Spontaneous
  Country: MY (occurrence: MY)
  Receive Date: 20241216
  Receipt Date: 20241216
  Transmission Date: 20250114
  Serious: Yes (Other)
  Sender: CIPLA
  Company Number: MY-CIPLA LTD.-2024MY14600

PATIENT

DRUGS (2)
  1. VALGANCICLOVIR [Suspect]
     Active Substance: VALGANCICLOVIR
     Indication: Cytomegalovirus infection
     Dosage: UNK, BID (16 MG PER KG TWICE DAILY)
     Route: 048
  2. GANCICLOVIR [Suspect]
     Active Substance: GANCICLOVIR
     Indication: Cytomegalovirus infection
     Dosage: UNK, BID (6 MG PER KG TWICE DAILY)
     Route: 042

REACTIONS (2)
  - Hepatitis [Unknown]
  - Thrombocytopenia [Unknown]
